FAERS Safety Report 6573205-1 (Version None)
Quarter: 2010Q1

REPORT INFORMATION
  Report Type: 
  Country: None (occurrence: None)
  Receive Date: 20100208
  Receipt Date: 20100128
  Transmission Date: 20100710
  Serious: Yes (Hospitalization)
  Sender: FDA-Public Use
  Company Number: US-ALEXION-A201000037

PATIENT
  Sex: Female

DRUGS (9)
  1. SOLIRIS [Suspect]
     Indication: PAROXYSMAL NOCTURNAL HAEMOGLOBINURIA
     Dosage: 600 MG, QW
     Route: 042
     Dates: start: 20090225
  2. SOLIRIS [Suspect]
     Dosage: 900 MG, Q2W
     Route: 042
     Dates: start: 20090325, end: 20091201
  3. SOLIRIS [Suspect]
     Dosage: 900 MG, Q2W
     Route: 042
     Dates: start: 20100113
  4. COMPAZINE                          /00013302/ [Concomitant]
     Indication: NAUSEA
     Dosage: UNK
     Route: 048
  5. POTASSIUM CHLORIDE [Concomitant]
     Dosage: 20 MEQ, BID
     Route: 048
  6. ACTOS [Concomitant]
     Dosage: 15 MG, QD
     Route: 048
  7. AMBIEN [Concomitant]
     Dosage: 5 MG, PRN
     Route: 048
  8. CELEXA [Concomitant]
     Dosage: 20 MG, QD
     Route: 048
  9. PREVACID [Concomitant]
     Dosage: 15 MG, QD
     Route: 048

REACTIONS (1)
  - CEREBROVASCULAR ACCIDENT [None]
